FAERS Safety Report 7508342-8 (Version None)
Quarter: 2011Q2

REPORT INFORMATION
  Report Type: 
  Country: None (occurrence: None)
  Receive Date: 20110527
  Receipt Date: 20110519
  Transmission Date: 20111010
  Serious: Yes (Hospitalization)
  Sender: FDA-Public Use
  Company Number: DE-PFIZER INC-2011042777

PATIENT
  Age: 73 Year
  Sex: Female

DRUGS (11)
  1. FLUOROURACIL [Suspect]
     Indication: COLORECTAL CANCER METASTATIC
     Dosage: 4250 MG EVERY 2 WEEKS (MOST RECENT DOSE)
     Route: 042
     Dates: start: 20101202
  2. FLUOROURACIL [Suspect]
     Dosage: 700 MG EVERY 2 WEEKS
     Route: 040
     Dates: start: 20101202
  3. CETUXIMAB [Suspect]
     Indication: COLORECTAL CANCER METASTATIC
     Dosage: 445 MG, EVERY WEEK (MOST RECENT DOSE)
     Route: 042
     Dates: start: 20101202, end: 20110101
  4. LEUCOVORIN CALCIUM [Suspect]
     Indication: COLORECTAL CANCER METASTATIC
     Dosage: 700 MG, EVERY 2 WEEKS (MOST RECENT DOSE)
     Route: 042
     Dates: start: 20101202, end: 20110101
  5. METOPROLOL SUCCINATE [Concomitant]
     Dosage: 47.5 MG, 2X/DAY
     Route: 048
  6. ALOXI [Concomitant]
     Dosage: 250 UG, EVERY 2 WEEKS
     Route: 042
     Dates: start: 20101202
  7. LOPERAMIDE [Concomitant]
     Dosage: 2 MG, 3X/DAY
     Route: 048
  8. IRINOTECAN HCL [Suspect]
     Indication: COLORECTAL CANCER METASTATIC
     Dosage: 320 MG, EVERY 2 WEEKS (MOST RECENT DOSE)
     Route: 042
     Dates: start: 20101202, end: 20110101
  9. GRANISETRON [Concomitant]
     Dosage: 1 MG, 1X/DAY
     Route: 048
  10. RAMIPRIL [Concomitant]
     Dosage: 5 MG, 1X/DAY
     Route: 048
  11. METFORMIN [Concomitant]
     Dosage: 500 MG, 2X/DAY
     Route: 048

REACTIONS (2)
  - CAMPYLOBACTER INFECTION [None]
  - DIARRHOEA [None]
